FAERS Safety Report 11098834 (Version 1)
Quarter: 2015Q2

REPORT INFORMATION
  Report Type: Spontaneous
  Country: FR (occurrence: FR)
  Receive Date: 20150508
  Receipt Date: 20150508
  Transmission Date: 20150821
  Serious: Yes (Other)
  Sender: FDA-Public Use
  Company Number: FR-AUROBINDO-AUR-APL-2015-03138

PATIENT
  Age: 14 Year

DRUGS (13)
  1. FLUOXETINE [Interacting]
     Active Substance: FLUOXETINE\FLUOXETINE HYDROCHLORIDE
     Indication: POST-TRAUMATIC STRESS DISORDER
  2. RISPERIDONE 2MG [Interacting]
     Active Substance: RISPERIDONE
     Indication: MENTAL DISORDER
     Dosage: 2 MG, DAILY
     Route: 048
  3. RISPERIDONE 2MG [Interacting]
     Active Substance: RISPERIDONE
     Indication: DISSOCIATIVE DISORDER
  4. FLUOXETINE [Interacting]
     Active Substance: FLUOXETINE\FLUOXETINE HYDROCHLORIDE
     Indication: DEPRESSION
  5. FLUOXETINE [Interacting]
     Active Substance: FLUOXETINE\FLUOXETINE HYDROCHLORIDE
     Indication: DISSOCIATIVE DISORDER
  6. CARBAMAZEPINE. [Interacting]
     Active Substance: CARBAMAZEPINE
     Dosage: 400 MG IN 2 DOSES, UNK
     Route: 065
  7. CARBAMAZEPINE. [Interacting]
     Active Substance: CARBAMAZEPINE
     Dosage: 600 MG IN 3 DOSES, UNK
     Route: 065
  8. RISPERIDONE 2MG [Interacting]
     Active Substance: RISPERIDONE
     Indication: POST-TRAUMATIC STRESS DISORDER
  9. FLUOXETINE [Suspect]
     Active Substance: FLUOXETINE\FLUOXETINE HYDROCHLORIDE
     Indication: MENTAL DISORDER
     Dosage: 30 MG, DAILY
     Route: 048
  10. FLUOXETINE [Interacting]
     Active Substance: FLUOXETINE\FLUOXETINE HYDROCHLORIDE
     Indication: DELUSION
  11. RISPERIDONE 2MG [Interacting]
     Active Substance: RISPERIDONE
     Indication: DELUSION
  12. CARBAMAZEPINE. [Interacting]
     Active Substance: CARBAMAZEPINE
     Indication: AFFECTIVE DISORDER
     Dosage: 200 MG, UNK
     Route: 065
  13. RISPERIDONE 2MG [Interacting]
     Active Substance: RISPERIDONE
     Indication: DEPRESSION

REACTIONS (12)
  - Headache [Recovering/Resolving]
  - Drug level increased [Unknown]
  - Abdominal pain [Recovering/Resolving]
  - Asthenia [Recovering/Resolving]
  - General physical health deterioration [Recovering/Resolving]
  - Gastrointestinal disorder [Unknown]
  - Drug interaction [Recovering/Resolving]
  - Overdose [Recovering/Resolving]
  - Dizziness [Unknown]
  - Vision blurred [Recovering/Resolving]
  - Fatigue [Unknown]
  - Nausea [Recovering/Resolving]
